FAERS Safety Report 13587575 (Version 1)
Quarter: 2017Q2

REPORT INFORMATION
  Report Type: Spontaneous
  Country: US (occurrence: US)
  Receive Date: 20170526
  Receipt Date: 20170526
  Transmission Date: 20170830
  Serious: No
  Sender: FDA-Public Use
  Company Number: None

PATIENT
  Age: 84 Year
  Sex: Female

DRUGS (9)
  1. TIZANIDINE. [Concomitant]
     Active Substance: TIZANIDINE
  2. AMLODIPINE [Concomitant]
     Active Substance: AMLODIPINE BESYLATE
  3. MYRBETRIQ [Concomitant]
     Active Substance: MIRABEGRON
  4. ATORVASTATIN [Concomitant]
     Active Substance: ATORVASTATIN
  5. RANITIDINE. [Concomitant]
     Active Substance: RANITIDINE
  6. FORTEO [Suspect]
     Active Substance: TERIPARATIDE
  7. LISINOPRIL. [Concomitant]
     Active Substance: LISINOPRIL
  8. CEFDINIR. [Concomitant]
     Active Substance: CEFDINIR
  9. MONTELUKAST [Concomitant]
     Active Substance: MONTELUKAST SODIUM

REACTIONS (1)
  - Orthostatic hypotension [None]

NARRATIVE: CASE EVENT DATE: 20170526
